FAERS Safety Report 5193577-2 (Version None)
Quarter: 2006Q4

REPORT INFORMATION
  Report Type: 
  Country: None (occurrence: None)
  Receive Date: 20061228
  Receipt Date: 20060911
  Transmission Date: 20070319
  Serious: Yes (Other)
  Sender: FDA-Public Use
  Company Number: US-GLAXOSMITHKLINE-A0619763A

PATIENT
  Age: 51 Year
  Sex: Male

DRUGS (2)
  1. FLONASE [Suspect]
     Indication: DRUG USE FOR UNKNOWN INDICATION
     Route: 045
  2. COLD MEDICINE [Concomitant]

REACTIONS (3)
  - GLAUCOMA [None]
  - NASOPHARYNGITIS [None]
  - SINUS HEADACHE [None]
